FAERS Safety Report 23452037 (Version 6)
Quarter: 2024Q4

REPORT INFORMATION
  Report Type: Spontaneous
  Country: US (occurrence: US)
  Receive Date: 20240129
  Receipt Date: 20241226
  Transmission Date: 20250115
  Serious: Yes (Hospitalization, Other)
  Sender: PFIZER
  Company Number: US-PFIZER INC-PV202300204814

PATIENT
  Age: 69 Year
  Sex: Male
  Weight: 92.079 kg

DRUGS (6)
  1. MEKTOVI [Suspect]
     Active Substance: BINIMETINIB
     Indication: Metastatic malignant melanoma
     Dosage: 3 PILLS AT 7AM AND 3 PILLS AT 7PM EVERY DAY, SPACED THEM 12 HOURS APART)
     Dates: start: 20231124
  2. MEKTOVI [Suspect]
     Active Substance: BINIMETINIB
     Indication: Head and neck cancer
     Dosage: TAKE 2 TABS TWICE A DAY
     Route: 048
  3. MEKTOVI [Suspect]
     Active Substance: BINIMETINIB
     Indication: Malignant melanoma
  4. BRAFTOVI [Suspect]
     Active Substance: ENCORAFENIB
     Indication: Metastatic malignant melanoma
     Dosage: 6 PILLS EVERY DAY AT NOON
     Dates: start: 20231124
  5. BRAFTOVI [Suspect]
     Active Substance: ENCORAFENIB
     Indication: Head and neck cancer
     Dosage: 450 MG, DAILY (75MG - 6 DAILY)
     Dates: start: 20231124
  6. BRAFTOVI [Suspect]
     Active Substance: ENCORAFENIB
     Indication: Malignant melanoma
     Dosage: 75 MG CAP TAKE 4 CAP PO (ORAL) DAILY
     Route: 048

REACTIONS (8)
  - Illness [Unknown]
  - Colitis [Unknown]
  - Pyrexia [Recovered/Resolved]
  - Vomiting [Not Recovered/Not Resolved]
  - Nausea [Unknown]
  - Blood iron decreased [Unknown]
  - Fatigue [Unknown]
  - Diarrhoea [Unknown]
